FAERS Safety Report 9180718 (Version 1)
Quarter: 2013Q1

REPORT INFORMATION
  Report Type: Report from Study
  Country: JP (occurrence: JP)
  Receive Date: 20130322
  Receipt Date: 20130322
  Transmission Date: 20140127
  Serious: Yes (Other)
  Sender: FDA-Public Use
  Company Number: JP-JNJFOC-20130310676

PATIENT
  Age: 69 Year
  Sex: Female
  Weight: 55 kg

DRUGS (8)
  1. SIMPONI [Suspect]
     Indication: RHEUMATOID ARTHRITIS
     Route: 058
     Dates: start: 20120113
  2. ALL OTHER THERAPEUTIC PRODUCTS [Concomitant]
  3. METHOTREXATE [Concomitant]
     Indication: RHEUMATOID ARTHRITIS
     Dates: start: 20120503
  4. CELECOX [Concomitant]
     Indication: RHEUMATOID ARTHRITIS
     Route: 048
     Dates: start: 20120503
  5. PARIET [Concomitant]
     Route: 048
  6. LOCHOL [Concomitant]
     Indication: DYSLIPIDAEMIA
     Route: 048
  7. ACTONEL [Concomitant]
     Indication: OSTEOPOROSIS
     Route: 048
  8. FOLIAMIN [Concomitant]

REACTIONS (2)
  - Hypocomplementaemia [Recovered/Resolved]
  - Type III immune complex mediated reaction [Recovered/Resolved]
